FAERS Safety Report 15405175 (Version 1)
Quarter: 2018Q3

REPORT INFORMATION
  Report Type: Spontaneous
  Country: ES (occurrence: ES)
  Receive Date: 20180920
  Receipt Date: 20180920
  Transmission Date: 20181010
  Serious: Yes (Hospitalization, Other)
  Sender: FDA-Public Use
  Company Number: ES-AUROBINDO-AUR-APL-2018-045793

PATIENT
  Age: 6 Decade
  Sex: Female

DRUGS (4)
  1. IBUPROFEN. [Suspect]
     Active Substance: IBUPROFEN
     Indication: PAIN
     Dosage: 600 MILLIGRAM, IN TOTAL
     Route: 065
  2. AMOXICILLIN+CLAVULANIC ACID 875/125MG [Suspect]
     Active Substance: AMOXICILLIN\CLAVULANIC ACID
     Indication: PRODUCT USED FOR UNKNOWN INDICATION
     Dosage: 1 DOSAGE FORM
     Route: 065
  3. FOLIC ACID. [Concomitant]
     Active Substance: FOLIC ACID
     Indication: VITAMIN SUPPLEMENTATION
     Dosage: UNK
     Route: 048
  4. METHOTREXATE. [Suspect]
     Active Substance: METHOTREXATE
     Indication: PSORIASIS
     Dosage: 25 MILLIGRAM, THE PATIENT WAS ON THE SAME MTX PRESCRIPTION DOSE FOR THE PAST 20 YEARS.
     Route: 065

REACTIONS (6)
  - Pancytopenia [Recovered/Resolved]
  - Skin erosion [Recovered/Resolved]
  - Stomatitis [Recovered/Resolved]
  - Toxicity to various agents [Recovered/Resolved]
  - Renal impairment [Recovered/Resolved]
  - Skin ulcer [Recovered/Resolved]
